FAERS Safety Report 7337675-3 (Version None)
Quarter: 2011Q1

REPORT INFORMATION
  Report Type: 
  Country: None (occurrence: None)
  Receive Date: 20110228
  Receipt Date: 20110210
  Transmission Date: 20110831
  Serious: Yes (Hospitalization)
  Sender: FDA-Public Use
  Company Number: 2011GW000095

PATIENT
  Age: 44 Year
  Sex: Male

DRUGS (12)
  1. PREDNISONE [Concomitant]
  2. AMLODIPINE [Concomitant]
  3. CYCLOSPORINE [Concomitant]
  4. ASPIRIN [Concomitant]
  5. RANITIDINE [Concomitant]
  6. ATORVASTATIN CALCIUM [Concomitant]
  7. AZATHIOPRINE [Concomitant]
  8. FLECAINIDE ACETATE [Concomitant]
  9. IMIQUIMOD [Suspect]
     Indication: SKIN PAPILLOMA
     Dosage: 5 PCT;QOD;TOP
     Route: 061
  10. PROGRAF [Concomitant]
  11. RAPAMYCIN [Concomitant]
  12. MYCOPHENOLATE MOFETIL [Concomitant]

REACTIONS (13)
  - WHITE BLOOD CELL COUNT INCREASED [None]
  - RENAL TUBULAR NECROSIS [None]
  - ANURIA [None]
  - HAEMATOCRIT DECREASED [None]
  - OROPHARYNGEAL PAIN [None]
  - BLOOD FIBRINOGEN INCREASED [None]
  - ULTRASOUND SCAN ABNORMAL [None]
  - PYREXIA [None]
  - HAEMOGLOBIN DECREASED [None]
  - RENAL FAILURE ACUTE [None]
  - ASTHENIA [None]
  - BACK PAIN [None]
  - DIZZINESS [None]
